FAERS Safety Report 17536419 (Version 2)
Quarter: 2020Q2

REPORT INFORMATION
  Report Type: Report from Study
  Country: CA (occurrence: CA)
  Receive Date: 20200313
  Receipt Date: 20200402
  Transmission Date: 20200713
  Serious: Yes (Hospitalization, Other)
  Sender: FDA-Public Use
  Company Number: CA-ROCHE-1752620

PATIENT
  Age: 59 Year
  Sex: Female

DRUGS (24)
  1. RITUXAN [Suspect]
     Active Substance: RITUXIMAB
     Indication: RHEUMATOID ARTHRITIS
     Route: 042
     Dates: start: 20160503
  2. METHYLPREDNISOLONE. [Concomitant]
     Active Substance: METHYLPREDNISOLONE
     Indication: PREMEDICATION
     Route: 042
     Dates: start: 20160503
  3. VALSARTAN. [Concomitant]
     Active Substance: VALSARTAN
  4. DIPHENHYDRAMINE HCL [Concomitant]
     Active Substance: DIPHENHYDRAMINE HYDROCHLORIDE
     Indication: PREMEDICATION
     Route: 048
     Dates: start: 20160503
  5. RESOTRAN [Concomitant]
     Active Substance: PRUCALOPRIDE SUCCINATE
  6. PROLIA [Concomitant]
     Active Substance: DENOSUMAB
     Route: 065
  7. TRAMACET [Concomitant]
     Active Substance: ACETAMINOPHEN\TRAMADOL
  8. CELLCEPT [Suspect]
     Active Substance: MYCOPHENOLATE MOFETIL\MYCOPHENOLATE MOFETIL HYDROCHLORIDE
     Indication: DERMATOMYOSITIS
  9. PREDNISONE. [Suspect]
     Active Substance: PREDNISONE
     Indication: PRODUCT USED FOR UNKNOWN INDICATION
     Route: 065
  10. LIDOCAINE. [Concomitant]
     Active Substance: LIDOCAINE
     Route: 065
  11. ZANTAC [Concomitant]
     Active Substance: RANITIDINE HYDROCHLORIDE
  12. ELAVIL [Concomitant]
     Active Substance: AMITRIPTYLINE HYDROCHLORIDE
  13. FLUCONAZOLE. [Concomitant]
     Active Substance: FLUCONAZOLE
  14. CELLCEPT [Suspect]
     Active Substance: MYCOPHENOLATE MOFETIL\MYCOPHENOLATE MOFETIL HYDROCHLORIDE
     Indication: RHEUMATOID ARTHRITIS
     Route: 048
     Dates: start: 201409, end: 201501
  15. RITUXAN [Suspect]
     Active Substance: RITUXIMAB
     Indication: DERMATOMYOSITIS
     Route: 042
     Dates: start: 20160517
  16. ACETAMINOPHEN. [Concomitant]
     Active Substance: ACETAMINOPHEN
     Indication: PREMEDICATION
     Route: 048
     Dates: start: 20160503
  17. BACTRIM [Concomitant]
     Active Substance: SULFAMETHOXAZOLE\TRIMETHOPRIM
  18. VAGIFEM [Concomitant]
     Active Substance: ESTRADIOL
  19. SULFASALAZINE. [Concomitant]
     Active Substance: SULFASALAZINE
     Route: 048
  20. TECTA [Concomitant]
     Active Substance: PANTOPRAZOLE MAGNESIUM
  21. DIOVAN [Concomitant]
     Active Substance: VALSARTAN
  22. ADALAT [Concomitant]
     Active Substance: NIFEDIPINE
  23. EZETIMIBE. [Concomitant]
     Active Substance: EZETIMIBE
  24. CYCLOPHOSPHAMIDE. [Concomitant]
     Active Substance: CYCLOPHOSPHAMIDE

REACTIONS (49)
  - Rheumatoid arthritis [Not Recovered/Not Resolved]
  - Skin ulcer [Unknown]
  - Back pain [Unknown]
  - Tachycardia [Unknown]
  - Arthralgia [Unknown]
  - Red blood cell count decreased [Unknown]
  - Musculoskeletal stiffness [Not Recovered/Not Resolved]
  - Treatment failure [Unknown]
  - Intentional dose omission [Unknown]
  - Pancytopenia [Unknown]
  - Pharyngeal disorder [Recovered/Resolved]
  - Arthropathy [Not Recovered/Not Resolved]
  - Muscle tightness [Not Recovered/Not Resolved]
  - Dyspepsia [Unknown]
  - C-reactive protein increased [Unknown]
  - Joint range of motion decreased [Unknown]
  - Fatigue [Unknown]
  - Sciatica [Unknown]
  - Weight increased [Unknown]
  - Osteoporosis [Not Recovered/Not Resolved]
  - Anaemia [Not Recovered/Not Resolved]
  - Haematocrit decreased [Unknown]
  - Haemoglobin decreased [Unknown]
  - Heliotrope rash [Unknown]
  - Intervertebral disc degeneration [Unknown]
  - Gastrointestinal disorder [Not Recovered/Not Resolved]
  - Drug ineffective [Unknown]
  - Dyspnoea exertional [Unknown]
  - Rotator cuff syndrome [Not Recovered/Not Resolved]
  - Interstitial lung disease [Unknown]
  - Respiratory tract infection [Unknown]
  - Off label use [Unknown]
  - Sleep apnoea syndrome [Unknown]
  - Anaemia [Unknown]
  - Transferrin decreased [Unknown]
  - Haemoglobin decreased [Unknown]
  - Poikiloderma [Unknown]
  - Pyrexia [Unknown]
  - Crepitations [Unknown]
  - Leukopenia [Unknown]
  - Lip pruritus [Recovered/Resolved]
  - Heart rate increased [Unknown]
  - Dermatomyositis [Unknown]
  - Urinary tract infection [Unknown]
  - Spondylolisthesis [Unknown]
  - Heart rate increased [Unknown]
  - Intentional product use issue [Unknown]
  - Iron binding capacity total decreased [Unknown]
  - Cough [Unknown]

NARRATIVE: CASE EVENT DATE: 2016
